FAERS Safety Report 12333614 (Version 1)
Quarter: 2016Q2

REPORT INFORMATION
  Report Type: Spontaneous
  Country: US (occurrence: US)
  Receive Date: 20160504
  Receipt Date: 20160504
  Transmission Date: 20160815
  Serious: No
  Sender: FDA-Public Use
  Company Number: US-ROCHE-ITM201506IM017416

PATIENT
  Sex: Female
  Weight: 74 kg

DRUGS (1)
  1. ESBRIET [Suspect]
     Active Substance: PIRFENIDONE
     Indication: IDIOPATHIC PULMONARY FIBROSIS
     Dosage: 1602 MG
     Route: 048
     Dates: start: 20150417

REACTIONS (6)
  - Swelling [Unknown]
  - Abdominal pain upper [Unknown]
  - Dyspepsia [Unknown]
  - Burning sensation [Unknown]
  - Reaction to colouring [Unknown]
  - Nausea [Not Recovered/Not Resolved]
